FAERS Safety Report 7362312-1 (Version None)
Quarter: 2011Q1

REPORT INFORMATION
  Report Type: 
  Country: None (occurrence: None)
  Receive Date: 20110315
  Receipt Date: 20110315
  Transmission Date: 20110831
  Serious: Yes (Other)
  Sender: FDA-Public Use
  Company Number: None

PATIENT
  Sex: Female

DRUGS (1)
  1. ONGLYZA 5 MG 1XDAY PILL [Suspect]
     Indication: DIABETES MELLITUS
     Dosage: 5 MG 1X DAY PILL
     Dates: start: 20100322, end: 20100901

REACTIONS (2)
  - RASH [None]
  - SCAR [None]
